FAERS Safety Report 25557501 (Version 1)
Quarter: 2025Q3

REPORT INFORMATION
  Report Type: Report from Study
  Country: EU (occurrence: EU)
  Receive Date: 20250715
  Receipt Date: 20250715
  Transmission Date: 20251021
  Serious: Yes (Other)
  Sender: PFIZER
  Company Number: EU-PFIZER INC-202500139307

PATIENT

DRUGS (12)
  1. RITUXIMAB [Suspect]
     Active Substance: RITUXIMAB
     Indication: Immunodeficiency common variable
  2. RITUXIMAB [Suspect]
     Active Substance: RITUXIMAB
     Indication: Rheumatic disorder
  3. FILGOTINIB [Concomitant]
     Active Substance: FILGOTINIB
     Indication: Immunodeficiency common variable
  4. FILGOTINIB [Concomitant]
     Active Substance: FILGOTINIB
     Indication: Rheumatic disorder
  5. HYDROXYCHLOROQUINE SULFATE [Concomitant]
     Active Substance: HYDROXYCHLOROQUINE SULFATE
     Indication: Immunodeficiency common variable
  6. HYDROXYCHLOROQUINE SULFATE [Concomitant]
     Active Substance: HYDROXYCHLOROQUINE SULFATE
     Indication: Rheumatic disorder
  7. ADALIMUMAB [Concomitant]
     Active Substance: ADALIMUMAB
     Indication: Immunodeficiency common variable
  8. ADALIMUMAB [Concomitant]
     Active Substance: ADALIMUMAB
     Indication: Rheumatic disorder
  9. ETANERCEPT [Concomitant]
     Active Substance: ETANERCEPT
     Indication: Immunodeficiency common variable
  10. ETANERCEPT [Concomitant]
     Active Substance: ETANERCEPT
     Indication: Rheumatic disorder
  11. INFLIXIMAB [Concomitant]
     Active Substance: INFLIXIMAB
     Indication: Immunodeficiency common variable
  12. INFLIXIMAB [Concomitant]
     Active Substance: INFLIXIMAB
     Indication: Rheumatic disorder

REACTIONS (4)
  - Drug ineffective [Unknown]
  - Condition aggravated [Unknown]
  - Arthritis [Unknown]
  - Rheumatic disorder [Unknown]
